APPROVED DRUG PRODUCT: FLUVASTATIN SODIUM
Active Ingredient: FLUVASTATIN SODIUM
Strength: EQ 80MG BASE
Dosage Form/Route: TABLET, EXTENDED RELEASE;ORAL
Application: A202458 | Product #001
Applicant: PHARMOBEDIENT CONSULTING LLC
Approved: Sep 11, 2015 | RLD: No | RS: No | Type: DISCN